FAERS Safety Report 14824335 (Version 1)
Quarter: 2018Q2

REPORT INFORMATION
  Report Type: Spontaneous
  Country: US (occurrence: US)
  Receive Date: 20180429
  Receipt Date: 20180429
  Transmission Date: 20180711
  Serious: No
  Sender: FDA-Public Use
  Company Number: US-009507513-1804USA008304

PATIENT
  Age: 20 Year
  Sex: Female
  Weight: 41.72 kg

DRUGS (3)
  1. ZOLOFT [Concomitant]
     Active Substance: SERTRALINE HYDROCHLORIDE
     Indication: DEPRESSION
  2. ZOLOFT [Concomitant]
     Active Substance: SERTRALINE HYDROCHLORIDE
     Indication: ANXIETY
     Dosage: 50 MG, UNK
  3. NEXPLANON [Suspect]
     Active Substance: ETONOGESTREL
     Indication: CONTRACEPTION
     Dosage: ^1 SINGLE ROD^
     Route: 059
     Dates: start: 201709

REACTIONS (2)
  - Acne [Recovered/Resolved]
  - Acne cystic [Recovered/Resolved]

NARRATIVE: CASE EVENT DATE: 201709
